FAERS Safety Report 8191489-3 (Version None)
Quarter: 2012Q1

REPORT INFORMATION
  Report Type: 
  Country: None (occurrence: None)
  Receive Date: 20120307
  Receipt Date: 20120301
  Transmission Date: 20120608
  Serious: Yes (Hospitalization)
  Sender: FDA-Public Use
  Company Number: US-B.I. PHARMACEUTICALS,INC./RIDGEFIELD-2011-BP-24273BP

PATIENT
  Sex: Male

DRUGS (6)
  1. PRADAXA [Suspect]
     Indication: ATRIAL FIBRILLATION
     Dosage: 150 MG
     Route: 048
     Dates: start: 20110501, end: 20110801
  2. LOSARTAN POTASSIUM [Concomitant]
     Indication: HYPERTENSION
     Route: 048
  3. PRADAXA [Suspect]
     Dosage: 300 MG
     Route: 048
     Dates: start: 20110801, end: 20120119
  4. TAMSULOSIN HCL [Concomitant]
     Route: 048
  5. MULTAQ [Suspect]
     Indication: ATRIAL FIBRILLATION
     Route: 048
     Dates: start: 20110801
  6. FLOMAX [Concomitant]
     Indication: PROSTATE INFECTION
     Route: 048

REACTIONS (4)
  - BLOOD URINE PRESENT [None]
  - DIARRHOEA [None]
  - RECTAL HAEMORRHAGE [None]
  - HAEMORRHAGE URINARY TRACT [None]
